FAERS Safety Report 4553170-9 (Version None)
Quarter: 2005Q1

REPORT INFORMATION
  Report Type: 
  Country: None (occurrence: None)
  Receive Date: 20050114
  Receipt Date: 20050105
  Transmission Date: 20050727
  Serious: Yes (Death)
  Sender: FDA-Public Use
  Company Number: FR-JNJFOC-20050101280

PATIENT
  Sex: Male
  Weight: 70 kg

DRUGS (9)
  1. REMINYL [Suspect]
     Indication: DEMENTIA
     Route: 049
     Dates: start: 20010725, end: 20010728
  2. HYDROXYZINE [Concomitant]
     Route: 065
  3. SERETIDE [Concomitant]
     Route: 065
  4. SERETIDE [Concomitant]
     Route: 065
  5. SINGULAIR [Concomitant]
     Route: 065
  6. MEPROBAMATE [Concomitant]
     Route: 065
  7. KARDEGIC [Concomitant]
     Route: 065
  8. AMLOR [Concomitant]
     Route: 065
  9. DEPAMIDE [Concomitant]
     Route: 065

REACTIONS (2)
  - SUDDEN CARDIAC DEATH [None]
  - SUDDEN DEATH [None]
